FAERS Safety Report 5693013-3 (Version None)
Quarter: 2008Q2

REPORT INFORMATION
  Report Type: 
  Country: None (occurrence: None)
  Receive Date: 20080402
  Receipt Date: 20080402
  Transmission Date: 20081010
  Serious: Yes (Hospitalization)
  Sender: FDA-Public Use
  Company Number: None

PATIENT
  Sex: Female

DRUGS (2)
  1. ARICEPT [Suspect]
     Indication: DEMENTIA
     Dosage: 10 MG DAILY PO
     Route: 048
     Dates: start: 20070830, end: 20070906
  2. ULTRACET [Suspect]
     Indication: ARTHRITIS
     Dosage: 37.5 MG/325 MG BID PO
     Route: 048

REACTIONS (1)
  - CONVULSION [None]
